FAERS Safety Report 20755541 (Version 2)
Quarter: 2022Q3

REPORT INFORMATION
  Report Type: Report from Study
  Country: US (occurrence: US)
  Receive Date: 20220427
  Receipt Date: 20220705
  Transmission Date: 20221027
  Serious: No
  Sender: FDA-Public Use
  Company Number: US-AMGEN-USASP2022066182

PATIENT
  Age: 76 Year
  Sex: Female

DRUGS (4)
  1. REPATHA [Suspect]
     Active Substance: EVOLOCUMAB
     Indication: Hypercholesterolaemia
     Dosage: 140 MILLIGRAM, Q2WK
     Route: 058
     Dates: start: 20220325, end: 20220420
  2. CHOLESTOFF PLUS [Concomitant]
  3. MAGNESIUM [Concomitant]
     Active Substance: MAGNESIUM
     Indication: Constipation
  4. STOMACH [Concomitant]
     Indication: Product used for unknown indication
     Route: 065

REACTIONS (6)
  - Abdominal discomfort [Not Recovered/Not Resolved]
  - Flatulence [Not Recovered/Not Resolved]
  - Musculoskeletal pain [Unknown]
  - Diarrhoea [Recovered/Resolved]
  - Rash [Unknown]
  - Back pain [Unknown]

NARRATIVE: CASE EVENT DATE: 20220101
